FAERS Safety Report 16943855 (Version 23)
Quarter: 2023Q1

REPORT INFORMATION
  Report Type: Other
  Country: DE (occurrence: None)
  Receive Date: 20191022
  Receipt Date: 20230213
  Transmission Date: 20230418
  Serious: Yes (Other)
  Sender: FDA-Public Use
  Company Number: DE-ROCHE-2442808

PATIENT
  Age: 40 Year
  Sex: Male
  Weight: 92 kg

DRUGS (9)
  1. OCREVUS [Suspect]
     Active Substance: OCRELIZUMAB
     Indication: Relapsing-remitting multiple sclerosis
     Dosage: 29/MAR/2018- 600 MG IN 354 DAYS.
     Route: 042
     Dates: start: 20180329
  2. OCREVUS [Suspect]
     Active Substance: OCRELIZUMAB
     Indication: Primary progressive multiple sclerosis
     Dosage: LAST DOSE RECEIVED ON 10/OCT/2019.
     Route: 042
     Dates: start: 201810
  3. OCREVUS [Suspect]
     Active Substance: OCRELIZUMAB
     Route: 042
     Dates: start: 202004
  4. COMIRNATY [Suspect]
     Active Substance: TOZINAMERAN
     Indication: Product used for unknown indication
     Dosage: BOOSTER DOSE GIVEN ON 02/NOV/2021
     Route: 065
  5. MODERNA COVID-19 VACCINE [Suspect]
     Active Substance: ELASOMERAN
     Indication: Product used for unknown indication
     Dosage: LATE JUNE/EARLY JULY/2021 / 30/JUL/2021)
     Route: 065
  6. CANDESARTAN [Concomitant]
     Active Substance: CANDESARTAN
  7. CARVEDILOL [Concomitant]
     Active Substance: CARVEDILOL
  8. VITAMIN D3 [Concomitant]
     Active Substance: CHOLECALCIFEROL
  9. MENAQUINONE 6 [Concomitant]
     Active Substance: MENAQUINONE 6

REACTIONS (11)
  - Anaphylactic shock [Recovered/Resolved]
  - Blood immunoglobulin M decreased [Not Recovered/Not Resolved]
  - Weight increased [Not Recovered/Not Resolved]
  - Decreased appetite [Not Recovered/Not Resolved]
  - Depressed mood [Not Recovered/Not Resolved]
  - Irritability [Not Recovered/Not Resolved]
  - Mycobacterium tuberculosis complex test positive [Recovered/Resolved]
  - Latent tuberculosis [Recovered/Resolved]
  - SARS-CoV-2 antibody test negative [Not Recovered/Not Resolved]
  - Pain in extremity [Recovered/Resolved]
  - Fatigue [Recovered/Resolved]

NARRATIVE: CASE EVENT DATE: 20181001
